FAERS Safety Report 20550762 (Version 1)
Quarter: 2022Q1

REPORT INFORMATION
  Report Type: Spontaneous
  Country: US (occurrence: US)
  Receive Date: 20220304
  Receipt Date: 20220304
  Transmission Date: 20220423
  Serious: Yes (Other)
  Sender: FDA-Public Use
  Company Number: US-ELI_LILLY_AND_COMPANY-US202202008977

PATIENT
  Sex: Female

DRUGS (2)
  1. CYMBALTA [Suspect]
     Active Substance: DULOXETINE HYDROCHLORIDE
     Indication: Depression
     Dosage: 30 MG, UNKNOWN
     Route: 048
     Dates: start: 202004
  2. CYMBALTA [Suspect]
     Active Substance: DULOXETINE HYDROCHLORIDE
     Indication: Anxiety
     Dosage: 60 MG, UNKNOWN
     Route: 048
     Dates: start: 202006, end: 202110

REACTIONS (11)
  - Suicidal ideation [Recovered/Resolved]
  - Impulse-control disorder [Unknown]
  - Frustration tolerance decreased [Unknown]
  - Crying [Unknown]
  - Pain [Unknown]
  - Arthralgia [Unknown]
  - Drug withdrawal syndrome [Recovering/Resolving]
  - Feeling abnormal [Unknown]
  - Depression [Unknown]
  - Anxiety [Unknown]
  - Drug ineffective [Unknown]
